FAERS Safety Report 7619081-7 (Version None)
Quarter: 2011Q3

REPORT INFORMATION
  Report Type: 
  Country: None (occurrence: None)
  Receive Date: 20110718
  Receipt Date: 20110714
  Transmission Date: 20111222
  Serious: Yes (Life-Threatening, Hospitalization, Other)
  Sender: FDA-Public Use
  Company Number: US-ASTRAZENECA-2011SE33470

PATIENT
  Age: 59 Year
  Sex: Male
  Weight: 88.4 kg

DRUGS (4)
  1. TOPROL-XL [Suspect]
     Indication: HYPERTENSION
     Route: 048
     Dates: start: 20020101
  2. HYDROCHLOROTHIAZIDE [Concomitant]
     Indication: HYPERTENSION
     Route: 048
     Dates: end: 20110513
  3. TOPROL-XL [Suspect]
     Route: 048
  4. TOPROL-XL [Suspect]
     Route: 048
     Dates: start: 19970101, end: 20110513

REACTIONS (4)
  - SINUS ARREST [None]
  - DIZZINESS [None]
  - CARDIAC PACEMAKER INSERTION [None]
  - CONDUCTION DISORDER [None]
